FAERS Safety Report 10662535 (Version 3)
Quarter: 2015Q1

REPORT INFORMATION
  Report Type: Report from Study
  Country: AU (occurrence: AU)
  Receive Date: 20141218
  Receipt Date: 20150224
  Transmission Date: 20150720
  Serious: Yes (Death, Life-Threatening, Hospitalization, Congenital Anomaly, Other)
  Sender: FDA-Public Use
  Company Number: PHHY2014AU164156

PATIENT
  Age: 70 Year
  Sex: Male

DRUGS (25)
  1. CLOZARIL [Suspect]
     Active Substance: CLOZAPINE
     Indication: SCHIZOPHRENIA
     Dosage: UNK
     Route: 048
     Dates: start: 19940518
  2. GLYCERIN SUPPOSITORIES [Concomitant]
     Indication: PRODUCT USED FOR UNKNOWN INDICATION
     Dosage: 2 DF, BID
     Route: 065
  3. CLEARLAX [Concomitant]
     Active Substance: POLYETHYLENE GLYCOL 3350
     Indication: PRODUCT USED FOR UNKNOWN INDICATION
     Dosage: 2 DF (IN 250 ML PEAR JUICE), BID
     Route: 065
  4. TARGIN [Concomitant]
     Active Substance: NALOXONE HYDROCHLORIDE\OXYCODONE HYDROCHLORIDE
     Indication: PRODUCT USED FOR UNKNOWN INDICATION
     Dosage: 5 OT, BID
     Route: 065
  5. SALBUTAMOL [Concomitant]
     Active Substance: ALBUTEROL
     Indication: PRODUCT USED FOR UNKNOWN INDICATION
     Dosage: 5 MG, AT 8.40 AM HRS
     Route: 055
  6. CLONAZEPAM. [Concomitant]
     Active Substance: CLONAZEPAM
     Indication: AGITATION
     Dosage: 4.25 MG (0.25 MG MID DAY, 2 MG AT 17:00 AND 2 MG AT 20:00)
     Route: 065
  7. GASTROGEL [Concomitant]
     Active Substance: ALUMINUM HYDROXIDE\MAGNESIUM HYDROXIDE\MAGNESIUM TRISILICATE
     Indication: PRODUCT USED FOR UNKNOWN INDICATION
     Dosage: 20 ML, QD
     Route: 065
  8. FENTANYL. [Concomitant]
     Active Substance: FENTANYL
     Indication: PRODUCT USED FOR UNKNOWN INDICATION
     Dosage: 1 MG, AT 9.50 AM
     Route: 042
  9. CLOZARIL [Suspect]
     Active Substance: CLOZAPINE
     Dosage: 375 MG (200 MG MORNING AND 175 MG NOCTE)
     Route: 048
  10. LIGNOCAINE [Concomitant]
     Active Substance: LIDOCAINE HYDROCHLORIDE
     Indication: PRODUCT USED FOR UNKNOWN INDICATION
     Dosage: LIGNOCAINE 4 PERCENT 120 MG AND LIGNOCAINE 2 PERCENT 160 MG AT 10.00 AM HRS
     Route: 065
  11. FERROUS FUMARATE [Concomitant]
     Active Substance: FERROUS FUMARATE
     Indication: PRODUCT USED FOR UNKNOWN INDICATION
     Dosage: 1 DF, QD
     Route: 065
  12. BENZTROPINE [Concomitant]
     Active Substance: BENZTROPINE
     Indication: PRODUCT USED FOR UNKNOWN INDICATION
     Dosage: 1 MG, BID
     Route: 065
  13. CLONAZEPAM. [Concomitant]
     Active Substance: CLONAZEPAM
     Dosage: 0.5 MG, PRN
     Route: 065
  14. PANTOPRAZOLE [Concomitant]
     Active Substance: PANTOPRAZOLE SODIUM
     Indication: PRODUCT USED FOR UNKNOWN INDICATION
     Dosage: 60 MG (20 MG MANE AND 40 MG NOCTE)
     Route: 065
  15. RESOLVE [Concomitant]
     Indication: NUTRITIONAL SUPPLEMENTATION
     Dosage: 2 DF, QD (MANE)
     Route: 065
  16. NICOTINE. [Concomitant]
     Active Substance: NICOTINE
     Indication: PRODUCT USED FOR UNKNOWN INDICATION
     Dosage: 21 MG, QD
     Route: 065
  17. MIDAZOLAM [Concomitant]
     Active Substance: MIDAZOLAM\MIDAZOLAM HYDROCHLORIDE
     Indication: PRODUCT USED FOR UNKNOWN INDICATION
     Dosage: 8 MG AT 9.55 AM HRS
     Route: 042
  18. CLOZARIL [Suspect]
     Active Substance: CLOZAPINE
     Dosage: DOSE REDUCED
     Route: 048
     Dates: start: 2000
  19. FOSAMAX [Concomitant]
     Active Substance: ALENDRONATE SODIUM
     Indication: PRODUCT USED FOR UNKNOWN INDICATION
     Dosage: 70 MG, WEEKLY
     Route: 065
  20. AGAROL                             /00080501/ [Concomitant]
     Indication: PRODUCT USED FOR UNKNOWN INDICATION
     Dosage: 20 ML, QID
     Route: 065
  21. PANADOL [Concomitant]
     Active Substance: ACETAMINOPHEN
     Indication: PRODUCT USED FOR UNKNOWN INDICATION
     Dosage: 1 G, QID
     Route: 065
  22. LIGNOCAINE [Concomitant]
     Active Substance: LIDOCAINE HYDROCHLORIDE
     Indication: PRODUCT USED FOR UNKNOWN INDICATION
     Dosage: 100 MG, AT 9.00 AM HRS
     Route: 055
  23. VITAMIN C [Concomitant]
     Active Substance: ASCORBIC ACID
     Indication: PRODUCT USED FOR UNKNOWN INDICATION
     Dosage: 500 MG, MANE
     Route: 065
  24. FISH OIL [Concomitant]
     Active Substance: FISH OIL
     Indication: PRODUCT USED FOR UNKNOWN INDICATION
     Dosage: 2 DF, BID
     Route: 065
  25. TEMAZEPAM. [Concomitant]
     Active Substance: TEMAZEPAM
     Indication: INSOMNIA
     Dosage: 10 MG, PRN (NOCTE)
     Route: 065

REACTIONS (28)
  - Lip squamous cell carcinoma [Unknown]
  - Dysarthria [Not Recovered/Not Resolved]
  - White blood cell count increased [Unknown]
  - Fall [Unknown]
  - Confusional state [Unknown]
  - Gastrooesophageal reflux disease [Recovering/Resolving]
  - Atelectasis [Fatal]
  - Pneumonia [Fatal]
  - General physical health deterioration [Unknown]
  - Crohn^s disease [Unknown]
  - Platelet count increased [Unknown]
  - Squamous cell carcinoma of lung [Fatal]
  - Bladder diverticulum [Unknown]
  - Acute kidney injury [Unknown]
  - Renal cyst [Not Recovered/Not Resolved]
  - Emphysema [Fatal]
  - Oedema mucosal [Fatal]
  - Urinary retention [Not Recovered/Not Resolved]
  - Bladder cyst [Unknown]
  - Anaemia [Unknown]
  - Pyrexia [Fatal]
  - Bronchitis chronic [Unknown]
  - Respiratory failure [Fatal]
  - Bronchial disorder [Fatal]
  - Bowen^s disease [Unknown]
  - Seizure [Recovered/Resolved]
  - Pleural effusion [Fatal]
  - Necrosis [Fatal]

NARRATIVE: CASE EVENT DATE: 2000
